FAERS Safety Report 24454471 (Version 2)
Quarter: 2024Q4

REPORT INFORMATION
  Report Type: Report from Study
  Country: US (occurrence: US)
  Receive Date: 20241017
  Receipt Date: 20241018
  Transmission Date: 20250114
  Serious: No
  Sender: ROCHE
  Company Number: US-ROCHE-3457038

PATIENT
  Age: 68 Year
  Sex: Female

DRUGS (8)
  1. RITUXAN [Suspect]
     Active Substance: RITUXIMAB
     Indication: Myopathy
     Dosage: THEN EVERY 6 MONTHS
     Route: 042
  2. RITUXAN [Suspect]
     Active Substance: RITUXIMAB
     Dosage: 500 MG SINGLE-USE VIAL
     Route: 042
     Dates: start: 20231110
  3. METHOTREXATE [Concomitant]
     Active Substance: METHOTREXATE
  4. INVOKANA [Concomitant]
     Active Substance: CANAGLIFLOZIN
  5. LISINOPRIL [Concomitant]
     Active Substance: LISINOPRIL
  6. METFORMIN [Concomitant]
     Active Substance: METFORMIN HYDROCHLORIDE
  7. TRULICITY [Concomitant]
     Active Substance: DULAGLUTIDE
  8. PREDNISONE [Concomitant]
     Active Substance: PREDNISONE

REACTIONS (2)
  - Off label use [Unknown]
  - No adverse event [Unknown]
